FAERS Safety Report 25551500 (Version 2)
Quarter: 2025Q3

REPORT INFORMATION
  Report Type: Spontaneous
  Country: EU (occurrence: EU)
  Receive Date: 20250714
  Receipt Date: 20250728
  Transmission Date: 20251020
  Serious: Yes (Life-Threatening, Hospitalization, Other)
  Sender: MYLAN
  Company Number: EU-MEDO2008-002817

PATIENT
  Age: 72 Year
  Sex: Female

DRUGS (4)
  1. METFORMIN [Suspect]
     Active Substance: METFORMIN HYDROCHLORIDE
     Indication: Type 2 diabetes mellitus
  2. METFORMIN [Suspect]
     Active Substance: METFORMIN HYDROCHLORIDE
     Route: 065
  3. METFORMIN [Suspect]
     Active Substance: METFORMIN HYDROCHLORIDE
     Route: 065
  4. METFORMIN [Suspect]
     Active Substance: METFORMIN HYDROCHLORIDE

REACTIONS (6)
  - Acute kidney injury [Unknown]
  - Poisoning [Recovered/Resolved]
  - Lactic acidosis [Unknown]
  - Septic shock [Recovered/Resolved]
  - Toxicity to various agents [Unknown]
  - Pneumonia [Unknown]
